FAERS Safety Report 15116756 (Version 1)
Quarter: 2018Q3

REPORT INFORMATION
  Report Type: Spontaneous
  Country: SA (occurrence: SA)
  Receive Date: 20180612
  Receipt Date: 20180612
  Transmission Date: 20181010
  Serious: Yes (Disabling)
  Sender: FDA-Public Use
  Company Number: None

PATIENT
  Age: 31 Year
  Sex: Female
  Weight: 79 kg

DRUGS (1)
  1. BOTOX [Suspect]
     Active Substance: ONABOTULINUMTOXINA
     Indication: SKIN WRINKLING
     Route: 030

REACTIONS (6)
  - Depression [None]
  - Quality of life decreased [None]
  - Feeling abnormal [None]
  - Hypoaesthesia [None]
  - Gait disturbance [None]
  - Pain [None]

NARRATIVE: CASE EVENT DATE: 20170131
